FAERS Safety Report 21838629 (Version 2)
Quarter: 2023Q1

REPORT INFORMATION
  Report Type: Spontaneous
  Country: US (occurrence: US)
  Receive Date: 20230109
  Receipt Date: 20230202
  Transmission Date: 20230418
  Serious: No
  Sender: FDA-Public Use
  Company Number: US-AMGEN-USASP2023000201

PATIENT

DRUGS (2)
  1. OTEZLA [Suspect]
     Active Substance: APREMILAST
     Indication: Psoriasis
     Dosage: UNK
     Route: 065
  2. ENBREL [Suspect]
     Active Substance: ETANERCEPT
     Indication: Psoriasis
     Dosage: UNK
     Route: 065

REACTIONS (9)
  - Adverse event [Unknown]
  - Blood test abnormal [Unknown]
  - Drug ineffective [Unknown]
  - Injection site pain [Unknown]
  - Injection site reaction [Unknown]
  - Fear [Unknown]
  - Fear of injection [Unknown]
  - Anxiety [Unknown]
  - Therapeutic product effect decreased [Unknown]
